FAERS Safety Report 4739902-5 (Version None)
Quarter: 2005Q3

REPORT INFORMATION
  Report Type: 
  Country: None (occurrence: None)
  Receive Date: 20050810
  Receipt Date: 20020806
  Transmission Date: 20060218
  Serious: Yes (Disabling)
  Sender: FDA-Public Use
  Company Number: US-GLAXOSMITHKLINE-A0377040A

PATIENT
  Sex: Female

DRUGS (2)
  1. PAXIL [Suspect]
     Indication: ANXIETY
     Route: 065
  2. PROZAC [Concomitant]
     Dosage: 40MG PER DAY
     Dates: start: 20020101

REACTIONS (5)
  - DRUG WITHDRAWAL SYNDROME [None]
  - FORMICATION [None]
  - HYPERHIDROSIS [None]
  - NAUSEA [None]
  - VERTIGO [None]
